FAERS Safety Report 12089469 (Version 1)
Quarter: 2016Q1

REPORT INFORMATION
  Report Type: Spontaneous
  Country: GB (occurrence: GB)
  Receive Date: 20160218
  Receipt Date: 20160218
  Transmission Date: 20160526
  Serious: Yes (Other)
  Sender: FDA-Public Use
  Company Number: GB-WATSON-2016-03077

PATIENT
  Age: 51 Year
  Sex: Male
  Weight: 89.35 kg

DRUGS (3)
  1. TRAMCET [Concomitant]
     Active Substance: ACETAMINOPHEN\TRAMADOL
     Indication: PRODUCT USED FOR UNKNOWN INDICATION
     Dosage: UNK
     Route: 065
  2. MIRTAZAPINE (UNKNOWN) [Suspect]
     Active Substance: MIRTAZAPINE
     Indication: DEPRESSION
     Dosage: 15 MG, DAILY (TABLET)
     Route: 048
     Dates: start: 20160126, end: 20160127
  3. LYRICA [Concomitant]
     Active Substance: PREGABALIN
     Indication: PRODUCT USED FOR UNKNOWN INDICATION
     Dosage: UNK
     Route: 065

REACTIONS (9)
  - Confusional state [Recovering/Resolving]
  - Fatigue [Recovering/Resolving]
  - Coordination abnormal [Unknown]
  - Speech disorder [Unknown]
  - Nausea [Unknown]
  - Anger [Unknown]
  - Fine motor skill dysfunction [Recovering/Resolving]
  - Aggression [Recovering/Resolving]
  - Vomiting [Recovering/Resolving]

NARRATIVE: CASE EVENT DATE: 20160126
